FAERS Safety Report 13470530 (Version 2)
Quarter: 2017Q2

REPORT INFORMATION
  Report Type: Report from Study
  Country: None (occurrence: US)
  Receive Date: 20170424
  Receipt Date: 20170630
  Transmission Date: 20170830
  Serious: Yes (Hospitalization, Other)
  Sender: FDA-Public Use
  Company Number: US-ABBVIE-17K-163-1946207-00

PATIENT
  Sex: Female

DRUGS (2)
  1. HUMIRA [Suspect]
     Active Substance: ADALIMUMAB
     Indication: RHEUMATOID ARTHRITIS
     Route: 058
     Dates: start: 2014, end: 20170216
  2. HUMIRA [Suspect]
     Active Substance: ADALIMUMAB
     Indication: ANKYLOSING SPONDYLITIS

REACTIONS (9)
  - Meningitis bacterial [Recovered/Resolved]
  - Ear pain [Recovered/Resolved]
  - Coma [Recovered/Resolved]
  - Immunodeficiency [Recovered/Resolved]
  - Sinusitis [Unknown]
  - Cerebrospinal fluid leakage [Recovered/Resolved]
  - Seizure [Recovered/Resolved]
  - Ear congestion [Recovered/Resolved]
  - Neck pain [Recovered/Resolved]

NARRATIVE: CASE EVENT DATE: 2017
